FAERS Safety Report 17949364 (Version 1)
Quarter: 2020Q2

REPORT INFORMATION
  Report Type: Spontaneous
  Country: FR (occurrence: FR)
  Receive Date: 20200625
  Receipt Date: 20200625
  Transmission Date: 20200714
  Serious: Yes (Other)
  Sender: FDA-Public Use
  Company Number: NVSC2020FR173646

PATIENT
  Age: 10 Week
  Sex: Male

DRUGS (6)
  1. VORICONAZOLE. [Suspect]
     Active Substance: VORICONAZOLE
     Indication: CEREBRAL ASPERGILLOSIS
     Dosage: 32 MG/KG, QD
     Route: 042
  2. INEXIUM [Concomitant]
     Active Substance: ESOMEPRAZOLE
     Indication: PRODUCT USED FOR UNKNOWN INDICATION
     Dosage: 5 MG, QD
     Route: 048
  3. CASPOFUNGINE [Suspect]
     Active Substance: CASPOFUNGIN
     Indication: CEREBRAL ASPERGILLOSIS
     Dosage: 27.5 MG, QD
     Route: 042
     Dates: start: 20200225
  4. VORICONAZOLE. [Suspect]
     Active Substance: VORICONAZOLE
     Dosage: 20 MG/KG, QD
     Route: 042
  5. CASPOFUNGINE [Suspect]
     Active Substance: CASPOFUNGIN
     Dosage: 100 MG/M2
     Route: 042
     Dates: start: 20200225
  6. VORICONAZOLE. [Suspect]
     Active Substance: VORICONAZOLE
     Dosage: 8 MG/KG, BID
     Route: 042
     Dates: start: 20200224

REACTIONS (3)
  - Hepatocellular injury [Recovered/Resolved]
  - Product use issue [Unknown]
  - Cholestasis [Recovering/Resolving]

NARRATIVE: CASE EVENT DATE: 20200327
